FAERS Safety Report 8961689 (Version 1)
Quarter: 2012Q4

REPORT INFORMATION
  Report Type: Report from Study
  Country: FR (occurrence: FR)
  Receive Date: 20121213
  Receipt Date: 20121213
  Transmission Date: 20130627
  Serious: Yes (Death, Hospitalization, Other)
  Sender: FDA-Public Use
  Company Number: FR-CELGENEUS-056-21880-12080911

PATIENT
  Age: 43 Year
  Sex: Male

DRUGS (4)
  1. REVLIMID [Suspect]
     Indication: MYELOMA
     Dosage: 10 Milligram
     Route: 048
     Dates: start: 20110816
  2. REVLIMID [Suspect]
     Dosage: 10 Milligram
     Route: 048
     Dates: end: 20120619
  3. BORTEZOMIB [Suspect]
     Indication: MYELOMA
     Dosage: 7.8 Milligram
     Route: 065
     Dates: start: 20110816
  4. DEXAMETHASONE [Suspect]
     Indication: MYELOMA
     Dosage: 20 Milligram
     Route: 065
     Dates: start: 20110816

REACTIONS (2)
  - Pancreatic mass [Fatal]
  - Musculoskeletal pain [Recovered/Resolved]
